FAERS Safety Report 7646545-2 (Version None)
Quarter: 2011Q3

REPORT INFORMATION
  Report Type: 
  Country: None (occurrence: None)
  Receive Date: 20110801
  Receipt Date: 20110719
  Transmission Date: 20111222
  Serious: Yes (Other)
  Sender: FDA-Public Use
  Company Number: GB-UCBSA-037532

PATIENT
  Age: 44 Year
  Sex: Male

DRUGS (4)
  1. CARBAMAZEPINE [Concomitant]
  2. ZONISAMIDE [Concomitant]
  3. PREGABALIN [Concomitant]
  4. LACOSAMIDE [Suspect]
     Indication: PARTIAL SEIZURES
     Route: 048
     Dates: start: 20110501, end: 20110601

REACTIONS (7)
  - CONFUSIONAL STATE [None]
  - HEADACHE [None]
  - COMPLEX PARTIAL SEIZURES [None]
  - MOVEMENT DISORDER [None]
  - FALL [None]
  - AMNESIA [None]
  - MALAISE [None]
